FAERS Safety Report 15981443 (Version 1)
Quarter: 2019Q1

REPORT INFORMATION
  Report Type: Spontaneous
  Country: US (occurrence: LS)
  Receive Date: 20190219
  Receipt Date: 20190219
  Transmission Date: 20190418
  Serious: Yes (Hospitalization, Other)
  Sender: FDA-Public Use
  Company Number: LS-STI PHARMA LLC-2062877

PATIENT
  Age: 23 Year
  Sex: Female
  Weight: 49 kg

DRUGS (8)
  1. LEVOFLOXACIN. [Suspect]
     Active Substance: LEVOFLOXACIN
     Route: 048
     Dates: start: 20170830, end: 20190128
  2. PROTIONAMIDE [Suspect]
     Active Substance: PROTIONAMIDE
     Route: 048
     Dates: start: 20170830, end: 20190128
  3. SALBUTAMOL [Concomitant]
     Active Substance: ALBUTEROL
  4. CLOFAZIMINE [Suspect]
     Active Substance: CLOFAZIMINE
     Route: 048
     Dates: start: 20170830, end: 20190128
  5. ETHAMBUTOL HYDROCHLORIDE. [Suspect]
     Active Substance: ETHAMBUTOL HYDROCHLORIDE
     Indication: TUBERCULOSIS
     Route: 048
     Dates: start: 20190121, end: 20190128
  6. DELAMINID [Suspect]
     Active Substance: DELAMANID
     Route: 048
     Dates: start: 20190121, end: 20190128
  7. AMITRIPTYLLINE HYDROCHLORIDE [Concomitant]
     Dates: start: 20180219
  8. LEVOTHYROXINE SODIUM. [Concomitant]
     Active Substance: LEVOTHYROXINE SODIUM
     Dates: start: 20181126

REACTIONS (4)
  - Electrocardiogram QT prolonged [Unknown]
  - Arrhythmia [Unknown]
  - Syncope [Unknown]
  - Generalised tonic-clonic seizure [Unknown]

NARRATIVE: CASE EVENT DATE: 20190126
